FAERS Safety Report 9665403 (Version 1)
Quarter: 2013Q4

REPORT INFORMATION
  Report Type: Spontaneous
  Country: US (occurrence: US)
  Receive Date: 20131104
  Receipt Date: 20131104
  Transmission Date: 20140711
  Serious: Yes (Hospitalization)
  Sender: FDA-Public Use
  Company Number: US-JNJFOC-20131014213

PATIENT
  Age: 3 Decade
  Sex: Female

DRUGS (6)
  1. REMICADE [Suspect]
     Indication: RHEUMATOID ARTHRITIS
     Route: 042
  2. REMICADE [Suspect]
     Indication: RHEUMATOID ARTHRITIS
     Route: 042
  3. BENADRYL [Suspect]
     Indication: PREMEDICATION
     Route: 048
  4. TYLENOL [Suspect]
     Route: 065
  5. TYLENOL [Suspect]
     Indication: PREMEDICATION
     Route: 065
  6. METHOTREXATE [Concomitant]
     Route: 065

REACTIONS (3)
  - Swelling [Unknown]
  - Urticaria [Unknown]
  - Drug ineffective [Unknown]
